FAERS Safety Report 5878099-5 (Version None)
Quarter: 2008Q3

REPORT INFORMATION
  Report Type: 
  Country: None (occurrence: None)
  Receive Date: 20080911
  Receipt Date: 20080903
  Transmission Date: 20090109
  Serious: Yes (Other)
  Sender: FDA-Public Use
  Company Number: US-MERCK-0809USA00406

PATIENT
  Age: 65 Year
  Sex: Female

DRUGS (12)
  1. COZAAR [Suspect]
     Indication: HYPERTENSION
     Route: 048
     Dates: start: 20030101
  2. COZAAR [Suspect]
     Route: 048
  3. COZAAR [Suspect]
     Route: 048
  4. COZAAR [Suspect]
     Route: 048
  5. [THERAPY UNSPECIFIED] [Concomitant]
     Route: 065
  6. TIMOLOL [Concomitant]
     Route: 065
  7. [THERAPY UNSPECIFIED] [Concomitant]
     Route: 065
  8. LUVOX [Concomitant]
     Route: 065
  9. ACTONEL [Concomitant]
     Route: 065
  10. PREVACID [Concomitant]
     Route: 065
  11. ALLERGY DROPS [Concomitant]
     Route: 065
  12. THYROID [Concomitant]
     Route: 065

REACTIONS (3)
  - ARTHRALGIA [None]
  - BLINDNESS [None]
  - MYALGIA [None]
